FAERS Safety Report 23802775 (Version 1)
Quarter: 2024Q2

REPORT INFORMATION
  Report Type: Spontaneous
  Country: GB (occurrence: GB)
  Receive Date: 20240501
  Receipt Date: 20240501
  Transmission Date: 20240716
  Serious: Yes (Other)
  Sender: FDA-Public Use
  Company Number: GB-B.Braun Medical Inc.-2156340

PATIENT
  Age: 53 Year
  Sex: Female
  Weight: 102 kg

DRUGS (11)
  1. METRONIDAZOLE [Suspect]
     Active Substance: METRONIDAZOLE
     Dates: start: 20240415
  2. AMITRIPTYLINE HYDROCHLORIDE [Concomitant]
     Active Substance: AMITRIPTYLINE HYDROCHLORIDE
  3. TEMAZEPAM [Concomitant]
     Active Substance: TEMAZEPAM
  4. SERTRALINE [Concomitant]
     Active Substance: SERTRALINE HYDROCHLORIDE
  5. PROCHLORPERAZINE [Concomitant]
     Active Substance: PROCHLORPERAZINE
  6. OMEPRAZOLE [Concomitant]
     Active Substance: OMEPRAZOLE
  7. MOMETASONE [Concomitant]
     Active Substance: MOMETASONE
  8. EPIPEN [Concomitant]
     Active Substance: EPINEPHRINE
  9. ACETAMINOPHEN\PROPOXYPHENE HYDROCHLORIDE [Concomitant]
     Active Substance: ACETAMINOPHEN\PROPOXYPHENE HYDROCHLORIDE
  10. CEFACLOR [Concomitant]
     Active Substance: CEFACLOR
  11. APIXABAN [Concomitant]
     Active Substance: APIXABAN

REACTIONS (1)
  - Swelling [Recovered/Resolved]
